FAERS Safety Report 10230240 (Version 2)
Quarter: 2014Q2

REPORT INFORMATION
  Report Type: Spontaneous
  Country: MY (occurrence: None)
  Receive Date: 20140609
  Receipt Date: 20140612
  Transmission Date: 20141212
  Serious: Yes (Hospitalization)
  Sender: FDA-Public Use
  Company Number: SYM-2014-21556

PATIENT
  Age: 35 Year
  Sex: Female

DRUGS (3)
  1. METRONIDAZOLE [Suspect]
     Indication: PRODUCT USED FOR UNKNOWN INDICATION
     Dosage: 1500 MG, 3 IN 1 D FOR 5 DAYS
  2. CEFUROXIME (CEFUROXIME) [Suspect]
     Indication: PRODUCT USED FOR UNKNOWN INDICATION
     Dosage: 2250 MG, 3 IN 1 D, FOR 5 DAYS
  3. AMPICILLIN (AMPICILLIN) [Concomitant]

REACTIONS (3)
  - Acute psychosis [None]
  - Hallucination, auditory [None]
  - Delusion [None]
